FAERS Safety Report 24637399 (Version 2)
Quarter: 2024Q4

REPORT INFORMATION
  Report Type: Spontaneous
  Country: GR (occurrence: GR)
  Receive Date: 20241119
  Receipt Date: 20241216
  Transmission Date: 20250115
  Serious: Yes (Other)
  Sender: BRISTOL-MYERS SQUIBB COMPANY
  Company Number: GR-INCYTE CORPORATION-2024IN011752

PATIENT
  Age: 80 Year
  Sex: Female

DRUGS (2)
  1. LENALIDOMIDE [Suspect]
     Active Substance: LENALIDOMIDE
     Indication: Diffuse large B-cell lymphoma
     Dosage: UNK
     Dates: start: 202402
  2. TAFASITAMAB [Suspect]
     Active Substance: TAFASITAMAB
     Indication: Diffuse large B-cell lymphoma
     Dosage: AS PER THE APPROVED SMPC
     Route: 042
     Dates: start: 202402

REACTIONS (2)
  - Malignant neoplasm progression [Not Recovered/Not Resolved]
  - Off label use [Unknown]
